FAERS Safety Report 5484494-9 (Version None)
Quarter: 2007Q4

REPORT INFORMATION
  Report Type: 
  Country: None (occurrence: None)
  Receive Date: 20071010
  Receipt Date: 20070927
  Transmission Date: 20080405
  Serious: Yes (Hospitalization)
  Sender: FDA-Public Use
  Company Number: 2007BI020571

PATIENT
  Age: 42 Year
  Sex: Male

DRUGS (6)
  1. TYSABRI [Suspect]
     Indication: MULTIPLE SCLEROSIS
     Dosage: 300 MG;QM;IV
     Route: 042
     Dates: start: 20070823, end: 20070925
  2. LIORESAL [Concomitant]
  3. NEURONTIN [Concomitant]
  4. ZOLPIDEM TARTRATE [Concomitant]
  5. EFFEXOR [Concomitant]
  6. VASOTENAL [Concomitant]

REACTIONS (3)
  - ANAPHYLACTIC SHOCK [None]
  - DYSPNOEA [None]
  - FLUSHING [None]
